FAERS Safety Report 7780800-0 (Version None)
Quarter: 2011Q3

REPORT INFORMATION
  Report Type: 
  Country: None (occurrence: None)
  Receive Date: 20110927
  Receipt Date: 20110923
  Transmission Date: 20111222
  Serious: Yes (Other)
  Sender: FDA-Public Use
  Company Number: US-PFIZER INC-2011228245

PATIENT
  Sex: Female

DRUGS (5)
  1. LIPITOR [Suspect]
     Indication: BLOOD CHOLESTEROL ABNORMAL
     Dosage: 10 MG, DAILY
  2. LIPITOR [Suspect]
     Dosage: 10 MG, TWO TIMES A DAY
     Dates: start: 20110101
  3. LIPITOR [Suspect]
     Dosage: UNK
  4. LIPITOR [Suspect]
     Dosage: 10 MG, DAILY
  5. LIPITOR [Suspect]
     Dosage: 10 MG, TWO TIMES A DAY

REACTIONS (2)
  - MUSCULAR WEAKNESS [None]
  - DRUG ADMINISTRATION ERROR [None]
